FAERS Safety Report 24237645 (Version 5)
Quarter: 2024Q4

REPORT INFORMATION
  Report Type: Spontaneous
  Country: US (occurrence: US)
  Receive Date: 20240822
  Receipt Date: 20241101
  Transmission Date: 20250114
  Serious: No
  Sender: PFIZER
  Company Number: US-PFIZER INC-202400237018

PATIENT
  Age: 15 Year
  Sex: Male
  Weight: 61.9 kg

DRUGS (2)
  1. GENOTROPIN [Suspect]
     Active Substance: SOMATROPIN
     Dosage: 1.6MG 7 DAYS/WEEK
  2. GENOTROPIN [Suspect]
     Active Substance: SOMATROPIN
     Dosage: USE AS DIRECTED
     Route: 058

REACTIONS (4)
  - Malaise [Unknown]
  - Device issue [Unknown]
  - Device use error [Unknown]
  - Drug dose omission by device [Unknown]
